FAERS Safety Report 12549248 (Version 4)
Quarter: 2016Q4

REPORT INFORMATION
  Report Type: Report from Study
  Country: US (occurrence: US)
  Receive Date: 20160712
  Receipt Date: 20161108
  Transmission Date: 20170207
  Serious: Yes (Hospitalization)
  Sender: FDA-Public Use
  Company Number: US-ACTELION-A-NJ2015-128652

PATIENT
  Age: 78 Year
  Sex: Female

DRUGS (5)
  1. DIGOXIN. [Concomitant]
     Active Substance: DIGOXIN
     Dosage: 125 MCG, QD
  2. MULTIVITAMIN [Concomitant]
     Active Substance: VITAMINS
     Dosage: UNK, QD
  3. METOPROLOL. [Concomitant]
     Active Substance: METOPROLOL
     Dosage: 12.5 MG, QD
  4. VITAMIN C [Concomitant]
     Active Substance: ASCORBIC ACID
     Dosage: UNK
  5. OPSUMIT [Suspect]
     Active Substance: MACITENTAN
     Indication: PULMONARY ARTERIAL HYPERTENSION
     Dosage: 10 MG, QD
     Route: 048
     Dates: start: 20150106

REACTIONS (17)
  - Eyelids pruritus [Unknown]
  - Chronic obstructive pulmonary disease [Unknown]
  - Eyelid irritation [Recovering/Resolving]
  - Condition aggravated [Unknown]
  - Fracture [Unknown]
  - Eye irritation [Recovering/Resolving]
  - Osteoporosis [Unknown]
  - Eyelid margin crusting [Recovering/Resolving]
  - Glaucoma [Unknown]
  - Spinal compression fracture [Unknown]
  - Pneumonia [Recovering/Resolving]
  - Visual acuity reduced [Unknown]
  - Insomnia [Not Recovered/Not Resolved]
  - Fluid retention [Unknown]
  - Dyspnoea exertional [Recovering/Resolving]
  - Eye swelling [Unknown]
  - Dyspnoea [Unknown]

NARRATIVE: CASE EVENT DATE: 201601
